FAERS Safety Report 5536924-1 (Version None)
Quarter: 2007Q4

REPORT INFORMATION
  Report Type: 
  Country: None (occurrence: None)
  Receive Date: 20071207
  Receipt Date: 20071203
  Transmission Date: 20080405
  Serious: Yes (Death, Hospitalization, Other)
  Sender: FDA-Public Use
  Company Number: PHMT2007CA02222

PATIENT
  Age: 50 Year
  Sex: Male

DRUGS (13)
  1. CLOZARIL [Suspect]
     Indication: SCHIZOPHRENIA
     Dosage: 500 MG, QD
  2. CLOZARIL [Suspect]
     Dosage: 700 MG
  3. CLOZARIL [Suspect]
     Dosage: 700 MG, QHS
     Dates: start: 19930101
  4. OLANZAPINE [Concomitant]
     Dosage: 20 MG, QD
  5. OLANZAPINE [Concomitant]
     Dosage: 20 MG, BID
  6. ATORVASTATIN [Concomitant]
  7. FERROUS GLUCONATE [Concomitant]
  8. HEPARIN [Concomitant]
     Route: 058
  9. OXYGEN [Concomitant]
  10. SPIRONOLACTONE [Concomitant]
  11. FUROSEMIDE [Concomitant]
  12. METFORMIN HCL [Concomitant]
  13. ENALAPRIL [Concomitant]

REACTIONS (25)
  - AMYLOIDOSIS [None]
  - ANTISOCIAL BEHAVIOUR [None]
  - ANXIETY [None]
  - ASCITES [None]
  - CACHEXIA [None]
  - COMPUTERISED TOMOGRAM ABNORMAL [None]
  - CONFUSIONAL STATE [None]
  - CONGESTIVE CARDIOMYOPATHY [None]
  - DISCOMFORT [None]
  - DISORIENTATION [None]
  - DRUG LEVEL INCREASED [None]
  - EYELID OEDEMA [None]
  - FLAT AFFECT [None]
  - HEPATIC ENCEPHALOPATHY [None]
  - HYPOTENSION [None]
  - MALAISE [None]
  - PSYCHOMOTOR SKILLS IMPAIRED [None]
  - PULMONARY HYPERTENSION [None]
  - RESPIRATORY RATE INCREASED [None]
  - RIGHT VENTRICULAR FAILURE [None]
  - SARCOIDOSIS [None]
  - SEPSIS [None]
  - SOCIAL AVOIDANT BEHAVIOUR [None]
  - SPEECH DISORDER [None]
  - X-RAY ABNORMAL [None]
